FAERS Safety Report 18966071 (Version 2)
Quarter: 2021Q1

REPORT INFORMATION
  Report Type: Spontaneous
  Country: ES (occurrence: ES)
  Receive Date: 20210303
  Receipt Date: 20210308
  Transmission Date: 20210420
  Serious: Yes (Other)
  Sender: FDA-Public Use
  Company Number: NVSC2021ES048336

PATIENT

DRUGS (1)
  1. MYCOPHENOLIC ACID. [Suspect]
     Active Substance: MYCOPHENOLIC ACID
     Indication: FOETAL EXPOSURE DURING PREGNANCY
     Dosage: PATERNAL DOSE: UNK
     Route: 050

REACTIONS (2)
  - Exposure via father [Unknown]
  - Autism spectrum disorder [Unknown]
